FAERS Safety Report 24293813 (Version 1)
Quarter: 2024Q3

REPORT INFORMATION
  Report Type: Spontaneous
  Country: US (occurrence: None)
  Receive Date: 20240906
  Receipt Date: 20240906
  Transmission Date: 20241017
  Serious: No
  Sender: DOMPE FARMACEUTICI
  Company Number: US-FARMAPROD-202403-0713

PATIENT
  Sex: Female

DRUGS (6)
  1. OXERVATE [Suspect]
     Active Substance: CENEGERMIN-BKBJ
     Indication: Neurotrophic keratopathy
     Route: 047
     Dates: start: 20240125
  2. BUPROPION [Concomitant]
     Active Substance: BUPROPION
     Dosage: 24 HOURS
  3. PROGESTERONE [Concomitant]
     Active Substance: PROGESTERONE
  4. TRAZODONE HCL [Concomitant]
     Active Substance: TRAZODONE HYDROCHLORIDE
  5. LEVOTHYROXINE SODIUM [Concomitant]
     Active Substance: LEVOTHYROXINE SODIUM
  6. PREDNISOLONE-BROMFENAC [Concomitant]

REACTIONS (1)
  - Eye pain [Unknown]
